FAERS Safety Report 7015137-0 (Version None)
Quarter: 2010Q3

REPORT INFORMATION
  Report Type: 
  Country: None (occurrence: None)
  Receive Date: 20100927
  Receipt Date: 20091204
  Transmission Date: 20110219
  Serious: No
  Sender: FDA-Public Use
  Company Number: US-ASTRAZENECA-2009SE29700

PATIENT
  Sex: Female
  Weight: 69.9 kg

DRUGS (6)
  1. ARIMIDEX [Suspect]
     Route: 048
  2. FLOMAX [Concomitant]
  3. PRILOSEC [Concomitant]
  4. HYDROCODON [Concomitant]
  5. ZOLOFT [Concomitant]
  6. CALCIUM [Concomitant]

REACTIONS (9)
  - ARTHRALGIA [None]
  - ARTHRITIS [None]
  - ASTHENIA [None]
  - CONTUSION [None]
  - FALL [None]
  - FATIGUE [None]
  - HOT FLUSH [None]
  - PAIN [None]
  - UPPER LIMB FRACTURE [None]
